FAERS Safety Report 18868065 (Version 2)
Quarter: 2022Q4

REPORT INFORMATION
  Report Type: Spontaneous
  Country: US (occurrence: US)
  Receive Date: 20210209
  Receipt Date: 20221012
  Transmission Date: 20230112
  Serious: Yes (Other)
  Sender: FDA-Public Use
  Company Number: US-SA-SAC20210204000363

PATIENT
  Age: 67 Year
  Sex: Female

DRUGS (1)
  1. ZANTAC [Suspect]
     Active Substance: RANITIDINE HYDROCHLORIDE
     Dosage: UNKNOWN AT THIS TIME, QD
     Dates: start: 198701, end: 201901

REACTIONS (1)
  - Breast cancer stage I [Unknown]

NARRATIVE: CASE EVENT DATE: 20140101
